FAERS Safety Report 12085778 (Version 2)
Quarter: 2016Q1

REPORT INFORMATION
  Report Type: Spontaneous
  Country: US (occurrence: US)
  Receive Date: 20160217
  Receipt Date: 20160317
  Transmission Date: 20160526
  Serious: Yes (Other)
  Sender: FDA-Public Use
  Company Number: US-BAYER-2016-028832

PATIENT
  Age: 43 Year
  Sex: Female
  Weight: 114.29 kg

DRUGS (4)
  1. BUPROPION. [Concomitant]
     Active Substance: BUPROPION
     Dosage: 150 MG, UNK
     Route: 048
  2. MIRENA [Suspect]
     Active Substance: LEVONORGESTREL
     Indication: CONTRACEPTION
     Dosage: DAILY DOSE 20 MCG/24HR
     Route: 015
     Dates: start: 20151021, end: 20160203
  3. NASCOBAL [Concomitant]
     Active Substance: CYANOCOBALAMIN
     Dosage: UNK UNK, OW
     Route: 045
  4. FLONASE [Concomitant]
     Active Substance: FLUTICASONE PROPIONATE
     Route: 045

REACTIONS (9)
  - Abdominal pain lower [None]
  - Device expulsion [Recovered/Resolved]
  - Genital haemorrhage [None]
  - Uterine haemorrhage [None]
  - Migraine [None]
  - Off label use [None]
  - Secondary hypertension [None]
  - Menometrorrhagia [None]
  - Device issue [None]

NARRATIVE: CASE EVENT DATE: 201601
